FAERS Safety Report 17801383 (Version 2)
Quarter: 2020Q2

REPORT INFORMATION
  Report Type: Spontaneous
  Country: US (occurrence: US)
  Receive Date: 20200519
  Receipt Date: 20200521
  Transmission Date: 20200714
  Serious: No
  Sender: FDA-Public Use
  Company Number: US-TEVA-2020-US-1237898

PATIENT
  Age: 76 Year
  Sex: Female

DRUGS (7)
  1. LOPERAMIDE HYDROCHLORIDE TEVA [Suspect]
     Active Substance: LOPERAMIDE HYDROCHLORIDE
     Indication: DIARRHOEA
     Dosage: 1 DOSE
     Route: 065
     Dates: start: 20200423
  2. CHOLESTYRAMINE. [Concomitant]
     Active Substance: CHOLESTYRAMINE
     Indication: DIARRHOEA
     Route: 065
  3. LOPERAMIDE HYDROCHLORIDE TEVA [Suspect]
     Active Substance: LOPERAMIDE HYDROCHLORIDE
     Dosage: 2 MG FOUR TIMES DAILY
     Route: 065
     Dates: start: 20200423
  4. ONIVYDE [Suspect]
     Active Substance: IRINOTECAN HYDROCHLORIDE
     Route: 065
     Dates: start: 20200413
  5. SIMETHICONE (DIMETHICONE) [Concomitant]
     Active Substance: DIMETHICONE
     Indication: DIARRHOEA
     Route: 065
  6. LEUCOVORIN. [Suspect]
     Active Substance: LEUCOVORIN
     Route: 065
     Dates: start: 20200413
  7. 5FU [Suspect]
     Active Substance: FLUOROURACIL
     Dosage: 46-HR 5FU INFUSION
     Route: 065
     Dates: start: 20200413, end: 20200415

REACTIONS (1)
  - Therapeutic product effect incomplete [Unknown]

NARRATIVE: CASE EVENT DATE: 20200423
